FAERS Safety Report 10009354 (Version 3)
Quarter: 2015Q3

REPORT INFORMATION
  Report Type: Spontaneous
  Country: US (occurrence: US)
  Receive Date: 20140313
  Receipt Date: 20150814
  Transmission Date: 20151125
  Serious: No
  Sender: FDA-Public Use
  Company Number: US-GILEAD-2013-0074758

PATIENT
  Age: 54 Year
  Sex: Female

DRUGS (3)
  1. LETAIRIS [Suspect]
     Active Substance: AMBRISENTAN
     Indication: PULMONARY HYPERTENSION
  2. LETAIRIS [Suspect]
     Active Substance: AMBRISENTAN
     Indication: ALVEOLITIS ALLERGIC
     Dosage: 5 MG, QD
     Dates: start: 20110727
  3. REVATIO [Concomitant]
     Active Substance: SILDENAFIL CITRATE

REACTIONS (5)
  - Middle ear effusion [Recovering/Resolving]
  - Ear infection [Recovering/Resolving]
  - Hearing impaired [Recovering/Resolving]
  - Nasopharyngitis [Recovering/Resolving]
  - Wheezing [Recovering/Resolving]
